FAERS Safety Report 7985367-X (Version None)
Quarter: 2011Q4

REPORT INFORMATION
  Report Type: 
  Country: None (occurrence: None)
  Receive Date: 20111216
  Receipt Date: 20111211
  Transmission Date: 20120403
  Serious: Yes (Other)
  Sender: FDA-Public Use
  Company Number: US-JNJFOC-20111200892

PATIENT
  Sex: Female

DRUGS (7)
  1. ZYRTEC-D 12 HOUR [Suspect]
     Dosage: 2 TABLETS DAILY,12 HRS. APART
     Route: 048
     Dates: end: 20111127
  2. ZYRTEC-D 12 HOUR [Suspect]
     Indication: SINUS CONGESTION
     Route: 048
  3. ZYRTEC-D 12 HOUR [Suspect]
     Indication: MULTIPLE ALLERGIES
     Route: 048
  4. ANTIBIOTIC UNSPECIFIED [Suspect]
     Indication: SINUSITIS
     Route: 065
  5. ZYRTEC-D 12 HOUR [Suspect]
     Dosage: 2 TABLETS DAILY,12 HRS. APART
     Route: 048
     Dates: end: 20111127
  6. ZYRTEC-D 12 HOUR [Suspect]
     Indication: SINUSITIS
     Route: 048
  7. ZYRTEC-D 12 HOUR [Suspect]
     Dosage: 2 TABLETS DAILY,12 HRS. APART
     Route: 048
     Dates: end: 20111127

REACTIONS (9)
  - ABDOMINAL PAIN UPPER [None]
  - OVERDOSE [None]
  - NAUSEA [None]
  - THYROID DISORDER [None]
  - MALAISE [None]
  - OFF LABEL USE [None]
  - ANXIETY [None]
  - ABDOMINAL DISCOMFORT [None]
  - DIARRHOEA [None]
